FAERS Safety Report 19522166 (Version 1)
Quarter: 2021Q3

REPORT INFORMATION
  Report Type: Spontaneous
  Country: US (occurrence: US)
  Receive Date: 20210712
  Receipt Date: 20210712
  Transmission Date: 20211014
  Serious: No
  Sender: FDA-Public Use
  Company Number: US-MYOVANT SCIENCES GMBH-2021MYSCI0400057

PATIENT
  Sex: Male

DRUGS (2)
  1. ORGOVYX [Suspect]
     Active Substance: RELUGOLIX
     Indication: PROSTATE CANCER
     Dosage: 360 MILLIGRAM, ONE TIME DOSE
     Route: 048
     Dates: start: 20210325, end: 20210325
  2. ORGOVYX [Suspect]
     Active Substance: RELUGOLIX
     Dosage: 1 TAB, QD
     Route: 048

REACTIONS (4)
  - Weight decreased [Not Recovered/Not Resolved]
  - Hot flush [Not Recovered/Not Resolved]
  - Blood glucose increased [Not Recovered/Not Resolved]
  - Back pain [Not Recovered/Not Resolved]
